FAERS Safety Report 9762836 (Version 2)
Quarter: 2013Q4

REPORT INFORMATION
  Report Type: Spontaneous
  Country: US (occurrence: US)
  Receive Date: 20131216
  Receipt Date: 20131216
  Transmission Date: 20140711
  Serious: No
  Sender: FDA-Public Use
  Company Number: US-FOUGERA-2013FO000075

PATIENT
  Age: 61 Year
  Sex: Female
  Weight: 88.53 kg

DRUGS (8)
  1. SOLARAZE [Suspect]
     Indication: ACTINIC KERATOSIS
     Route: 061
     Dates: start: 20130216, end: 20130315
  2. SOLARAZE [Suspect]
     Indication: SEBORRHOEIC KERATOSIS
  3. LEVOTHYROXIN [Concomitant]
     Indication: HYPOTHYROIDISM
     Route: 048
  4. PRILOSEC [Concomitant]
     Indication: PRODUCT USED FOR UNKNOWN INDICATION
     Route: 048
  5. ATENOLOL/CHLOROTHALIDONE [Concomitant]
     Indication: HYPERTENSION
     Route: 048
  6. ESTRADIOL PATCH [Concomitant]
     Indication: PRODUCT USED FOR UNKNOWN INDICATION
  7. ALLEGRA [Concomitant]
     Indication: SEASONAL ALLERGY
     Route: 048
  8. FLONASE NASAL SPRAY [Concomitant]
     Indication: SEASONAL ALLERGY
     Route: 048

REACTIONS (5)
  - Rash macular [Unknown]
  - Off label use [Recovered/Resolved]
  - Application site pruritus [Unknown]
  - Sleep disorder due to general medical condition, insomnia type [Unknown]
  - Dermatitis bullous [Unknown]
